FAERS Safety Report 12754378 (Version 6)
Quarter: 2017Q2

REPORT INFORMATION
  Report Type: Spontaneous
  Country: GB (occurrence: GB)
  Receive Date: 20160916
  Receipt Date: 20170531
  Transmission Date: 20170830
  Serious: Yes (Hospitalization, Other)
  Sender: FDA-Public Use
  Company Number: PHFR2016GB007346

PATIENT
  Age: 36 Year
  Sex: Female

DRUGS (12)
  1. KEPPRA [Suspect]
     Active Substance: LEVETIRACETAM
     Dosage: 250 MG, 2X/DAY (BID)
     Route: 048
     Dates: start: 201701
  2. TEGRETOL [Suspect]
     Active Substance: CARBAMAZEPINE
     Indication: PRODUCT USED FOR UNKNOWN INDICATION
     Dosage: 400 MG, BID (400 MG, 2X/DAY (BID) )
     Route: 048
  3. KEPPRA [Suspect]
     Active Substance: LEVETIRACETAM
     Indication: PARTIAL SEIZURES
     Dosage: 250 MG, BID 2X/DAY (BID)
     Route: 048
     Dates: start: 2004
  4. KEPPRA [Suspect]
     Active Substance: LEVETIRACETAM
     Indication: EPILEPSY
     Dosage: 750 MG, (750 MG TABLETS)
     Route: 048
  5. KEPPRA [Suspect]
     Active Substance: LEVETIRACETAM
     Dosage: 250 MG, 2X/DAY (BID)
     Route: 048
     Dates: end: 201609
  6. AMITRIPTYLINE HYDROCHLORIDE. [Concomitant]
     Active Substance: AMITRIPTYLINE HYDROCHLORIDE
     Indication: VIRAL UPPER RESPIRATORY TRACT INFECTION
     Dosage: 7 DAY COURSE 500 MG 1,3 TIMES A DAY
     Route: 065
  7. BRIVARACETAM [Suspect]
     Active Substance: BRIVARACETAM
     Indication: TEMPORAL LOBE EPILEPSY
  8. BRIVARACETAM [Suspect]
     Active Substance: BRIVARACETAM
     Indication: SEIZURE
     Dosage: 25 MG, 2X/DAY (BID)
     Route: 048
     Dates: start: 20160901, end: 201611
  9. BRIVARACETAM [Suspect]
     Active Substance: BRIVARACETAM
     Indication: PANIC ATTACK
  10. CARBAMAZEPINE. [Concomitant]
     Active Substance: CARBAMAZEPINE
     Indication: EPILEPSY
     Route: 048
  11. CALCIUM [Concomitant]
     Active Substance: CALCIUM
     Indication: PRODUCT USED FOR UNKNOWN INDICATION
     Route: 065
  12. KEPPRA [Suspect]
     Active Substance: LEVETIRACETAM
     Indication: TEMPORAL LOBE EPILEPSY
     Dosage: DOSE REDUCED TO LESS THEN 250
     Route: 048

REACTIONS (45)
  - Enuresis [Unknown]
  - Contusion [Not Recovered/Not Resolved]
  - Nausea [Not Recovered/Not Resolved]
  - Perinatal depression [Unknown]
  - Anxiety [Not Recovered/Not Resolved]
  - Psychomotor hyperactivity [Unknown]
  - Adverse drug reaction [Unknown]
  - Urinary tract infection [Unknown]
  - Pain [Unknown]
  - Pregnancy [Unknown]
  - Brain injury [Unknown]
  - Amnesia [Unknown]
  - Hyperhidrosis [Unknown]
  - Drug withdrawal convulsions [Unknown]
  - Insomnia [Unknown]
  - Constipation [Unknown]
  - Coma [Unknown]
  - Drug use disorder [Unknown]
  - Psychogenic seizure [Unknown]
  - Partial seizures [Unknown]
  - Panic attack [Not Recovered/Not Resolved]
  - Stress [Unknown]
  - Anger [Unknown]
  - Aggression [Not Recovered/Not Resolved]
  - Social problem [Unknown]
  - Cerebral disorder [Unknown]
  - Nasopharyngitis [Unknown]
  - Pain in extremity [Unknown]
  - Seizure [Unknown]
  - Abortion [Unknown]
  - Middle insomnia [Unknown]
  - Depression [Unknown]
  - Fatigue [Not Recovered/Not Resolved]
  - Palpitations [Unknown]
  - Autism spectrum disorder [Unknown]
  - Drug ineffective [Unknown]
  - Menstrual disorder [Unknown]
  - Pneumonia [Not Recovered/Not Resolved]
  - Mood swings [Unknown]
  - Tonic convulsion [Unknown]
  - Loss of consciousness [Unknown]
  - Emotional disorder [Unknown]
  - Confusional state [Unknown]
  - Oral herpes [Not Recovered/Not Resolved]
  - Agitation [Not Recovered/Not Resolved]

NARRATIVE: CASE EVENT DATE: 2007
